FAERS Safety Report 6522561-9 (Version None)
Quarter: 2009Q4

REPORT INFORMATION
  Report Type: 
  Country: None (occurrence: None)
  Receive Date: 20091230
  Receipt Date: 20091218
  Transmission Date: 20100525
  Serious: Yes (Hospitalization)
  Sender: FDA-Public Use
  Company Number: US-AMGEN-QUU376389

PATIENT
  Age: 49 Year
  Sex: Female
  Weight: 100.8 kg

DRUGS (2)
  1. ENBREL [Suspect]
     Indication: RHEUMATOID ARTHRITIS
  2. METHOTREXATE [Concomitant]

REACTIONS (2)
  - ASTHMA [None]
  - PULMONARY EMBOLISM [None]
